FAERS Safety Report 8214618-1 (Version None)
Quarter: 2012Q1

REPORT INFORMATION
  Report Type: 
  Country: None (occurrence: None)
  Receive Date: 20120316
  Receipt Date: 20120313
  Transmission Date: 20120608
  Serious: Yes (Other)
  Sender: FDA-Public Use
  Company Number: US-BAYER-2012-015968

PATIENT
  Age: 26 Year
  Sex: Female

DRUGS (1)
  1. MIRENA [Suspect]
     Indication: CONTRACEPTION
     Dosage: UNK
     Dates: start: 20120202, end: 20120202

REACTIONS (3)
  - PROCEDURAL PAIN [None]
  - DEVICE DIFFICULT TO USE [None]
  - POST PROCEDURAL HAEMORRHAGE [None]
